FAERS Safety Report 6265123-3 (Version None)
Quarter: 2009Q3

REPORT INFORMATION
  Report Type: 
  Country: None (occurrence: None)
  Receive Date: 20090713
  Receipt Date: 20090706
  Transmission Date: 20100115
  Serious: Yes (Other)
  Sender: FDA-Public Use
  Company Number: DE-JNJFOC-20090700711

PATIENT
  Age: 31 Year
  Sex: Male
  Weight: 116 kg

DRUGS (1)
  1. REMICADE [Suspect]
     Indication: PSORIATIC ARTHROPATHY
     Dosage: HAD RECEIVED 10 INFUSIONS
     Route: 042

REACTIONS (5)
  - FACE OEDEMA [None]
  - INFUSION RELATED REACTION [None]
  - MUSCLE SPASTICITY [None]
  - PALPITATIONS [None]
  - TACHYCARDIA [None]
